FAERS Safety Report 10101779 (Version 3)
Quarter: 2014Q3

REPORT INFORMATION
  Report Type: Spontaneous
  Country: US (occurrence: None)
  Receive Date: 20140422
  Receipt Date: 20140703
  Transmission Date: 20150326
  Serious: Yes (Hospitalization, Other)
  Sender: FDA-Public Use
  Company Number: 2014P1003430

PATIENT
  Age: 83 Year
  Sex: Male

DRUGS (6)
  1. ROPINIROLE HCL [Suspect]
     Active Substance: ROPINIROLE HYDROCHLORIDE
     Dates: start: 20090217, end: 20090605
  2. DIGOXIN. [Suspect]
     Active Substance: DIGOXIN
     Dates: start: 20060516
  3. JALYN [Suspect]
     Active Substance: DUTASTERIDE\TAMSULOSIN HYDROCHLORIDE
     Dates: start: 20110516
  4. DUTASTERIDE [Suspect]
     Active Substance: DUTASTERIDE
     Dates: start: 20050222, end: 20110516
  5. CARVEDILOL. [Suspect]
     Active Substance: CARVEDILOL
     Dates: start: 20050215, end: 20060523
  6. ROPINIROLE HCL [Suspect]
     Active Substance: ROPINIROLE HYDROCHLORIDE
     Dates: start: 20090304, end: 20120529

REACTIONS (7)
  - Foreign body aspiration [None]
  - Cardiac pacemaker insertion [None]
  - Implantable defibrillator insertion [None]
  - Parkinsonism [None]
  - Pneumonia [None]
  - Cardiac failure congestive [None]
  - Aspiration [None]

NARRATIVE: CASE EVENT DATE: 2006
